FAERS Safety Report 10677497 (Version 1)
Quarter: 2014Q4

REPORT INFORMATION
  Report Type: Spontaneous
  Country: US (occurrence: US)
  Receive Date: 20141228
  Receipt Date: 20141228
  Transmission Date: 20150529
  Serious: No
  Sender: FDA-Public Use
  Company Number: US-ASTRAZENECA-2014SE93120

PATIENT
  Sex: Female

DRUGS (3)
  1. SEROQUEL [Suspect]
     Active Substance: QUETIAPINE FUMARATE
     Indication: INSOMNIA
     Route: 048
  2. SEROQUEL [Suspect]
     Active Substance: QUETIAPINE FUMARATE
     Indication: ANXIETY
     Route: 048
  3. SEROQUEL [Suspect]
     Active Substance: QUETIAPINE FUMARATE
     Indication: ANXIETY
     Route: 048

REACTIONS (9)
  - Nausea [Unknown]
  - Insomnia [Unknown]
  - Adverse event [Unknown]
  - Agitation [Unknown]
  - Abnormal dreams [Unknown]
  - Abdominal discomfort [Unknown]
  - Dementia [Unknown]
  - Intentional product misuse [Unknown]
  - Drug dose omission [Unknown]

NARRATIVE: CASE EVENT DATE: 2014
